FAERS Safety Report 7095439-2 (Version None)
Quarter: 2010Q4

REPORT INFORMATION
  Report Type: 
  Country: None (occurrence: None)
  Receive Date: 20101111
  Receipt Date: 20101109
  Transmission Date: 20110411
  Serious: Yes (Death, Life-Threatening)
  Sender: FDA-Public Use
  Company Number: FR-BRISTOL-MYERS SQUIBB COMPANY-15255375

PATIENT
  Age: 53 Year
  Sex: Male

DRUGS (11)
  1. GLUCOVANCE [Suspect]
     Indication: TYPE 2 DIABETES MELLITUS
     Dosage: (METFORMIN 500MG,GLIBENCLAMIDE 2.5MG)
     Route: 048
     Dates: start: 20050101
  2. SUSTIVA [Suspect]
     Indication: HIV TEST POSITIVE
     Dosage: FORMULATION:SUSTIVA 600MG
     Dates: start: 20040101
  3. ISENTRESS [Suspect]
     Indication: HIV TEST POSITIVE
     Dosage: FORMULATION:ISENTRESS 400MG
     Route: 048
     Dates: start: 20100129, end: 20100304
  4. TELZIR [Suspect]
     Indication: HIV TEST POSITIVE
     Route: 048
     Dates: start: 20040101
  5. NORVIR [Suspect]
     Indication: HIV TEST POSITIVE
     Route: 048
     Dates: start: 20040101
  6. REVATIO [Suspect]
     Indication: PULMONARY HYPERTENSION
     Dosage: REVATIO 20MG
     Dates: start: 20090701
  7. EFFEXOR [Concomitant]
     Indication: DEPRESSION
     Dates: start: 20050101
  8. RISPERDAL [Concomitant]
     Indication: DEPRESSION
     Dates: start: 20050101
  9. MEPRONIZINE [Concomitant]
     Indication: DEPRESSION
     Route: 048
  10. ATARAX [Concomitant]
     Indication: DEPRESSION
     Dates: start: 20050101
  11. VIDEX [Concomitant]
     Dates: start: 20040101

REACTIONS (6)
  - DYSPNOEA [None]
  - HYPERLACTACIDAEMIA [None]
  - INSOMNIA [None]
  - METABOLIC ACIDOSIS [None]
  - SHOCK [None]
  - VENTRICULAR ARRHYTHMIA [None]
